FAERS Safety Report 20292302 (Version 2)
Quarter: 2022Q1

REPORT INFORMATION
  Report Type: Spontaneous
  Country: AR (occurrence: AR)
  Receive Date: 20220104
  Receipt Date: 20220203
  Transmission Date: 20220423
  Serious: Yes (Hospitalization)
  Sender: FDA-Public Use
  Company Number: AR-PFIZER INC-202101849231

PATIENT
  Age: 58 Year
  Sex: Male

DRUGS (4)
  1. SUTENT [Suspect]
     Active Substance: SUNITINIB MALATE
     Indication: Metastatic renal cell carcinoma
     Dosage: 50 MG, CYCLIC (21 DAYS, SCHEME 2/1 REST)
     Dates: start: 20210527, end: 20210929
  2. SUTENT [Suspect]
     Active Substance: SUNITINIB MALATE
     Dosage: 50 MG, CYCLIC (21 DAYS, SCHEME 2/1 REST)
     Dates: end: 20211204
  3. MORPHINE [Concomitant]
     Active Substance: MORPHINE
     Dosage: UNK, 1X/DAY
  4. MORPHINE [Concomitant]
     Active Substance: MORPHINE
     Dosage: UNK, 2X/DAY

REACTIONS (3)
  - Pleural effusion [Not Recovered/Not Resolved]
  - COVID-19 [Unknown]
  - Neoplasm progression [Unknown]

NARRATIVE: CASE EVENT DATE: 20211204
